FAERS Safety Report 7963786 (Version 6)
Quarter: 2012Q4

REPORT INFORMATION
  Report Type: 
  Country: AT (occurrence: AT)
  Receive Date: 20110527
  Receipt Date: 20121203
  Transmission Date: 20130627
  Serious: Yes (Death, Other)
  Sender: FDA-Public Use
  Company Number: AT-CELGENEUS-009-21880-11051599

PATIENT

DRUGS (3)
  1. REVLIMID [Suspect]
     Indication: MYELOMA
     Route: 048
  2. DEXAMETHASONE [Concomitant]
     Indication: MULTIPLE MYELOMA
     Dosage: 40 Milligram
     Route: 065
  3. DEXAMETHASONE [Concomitant]
     Dosage: 5.7143 Milligram
     Route: 065

REACTIONS (23)
  - Cardiac disorder [Fatal]
  - Infection [Fatal]
  - Cardiac arrest [Fatal]
  - Sudden death [Fatal]
  - Cerebrovascular accident [Fatal]
  - Sepsis [Fatal]
  - Cerebrovascular accident [Unknown]
  - Hypokalaemia [Unknown]
  - Anaemia [Unknown]
  - Leukopenia [Unknown]
  - Thrombocytopenia [Unknown]
  - Pulmonary embolism [Unknown]
  - Neutropenia [Unknown]
  - Macular oedema [Unknown]
  - Rash [Unknown]
  - Fatigue [Unknown]
  - Oral candidiasis [Unknown]
  - Disease progression [Unknown]
  - No therapeutic response [Unknown]
  - Embolism [Unknown]
  - Hypocalcaemia [Unknown]
  - Hypokalaemia [Unknown]
  - Hyperglycaemia [Unknown]
